FAERS Safety Report 24556995 (Version 1)
Quarter: 2024Q4

REPORT INFORMATION
  Report Type: Spontaneous
  Country: US (occurrence: US)
  Receive Date: 20241028
  Receipt Date: 20241028
  Transmission Date: 20250115
  Serious: No
  Sender: SANDOZ
  Company Number: US-002147023-NVSC2022US174058

PATIENT
  Sex: Female

DRUGS (3)
  1. MELOXICAM [Suspect]
     Active Substance: MELOXICAM
     Indication: Product used for unknown indication
     Dosage: UNK
     Route: 065
  2. RECLAST [Suspect]
     Active Substance: ZOLEDRONIC ACID
     Indication: Bone loss
     Dosage: UNK
     Route: 065
  3. TYMLOS [Concomitant]
     Active Substance: ABALOPARATIDE
     Indication: Product used for unknown indication
     Dosage: UNK
     Route: 065

REACTIONS (3)
  - Bone loss [Unknown]
  - Joint injury [Unknown]
  - Influenza like illness [Unknown]
